FAERS Safety Report 5212970-2 (Version None)
Quarter: 2007Q1

REPORT INFORMATION
  Report Type: 
  Country: None (occurrence: None)
  Receive Date: 20070117
  Receipt Date: 20070117
  Transmission Date: 20070707
  Serious: Yes (Life-Threatening)
  Sender: FDA-Public Use
  Company Number: None

PATIENT
  Age: 60 Year
  Sex: Male

DRUGS (1)
  1. DEFINITY [Suspect]
     Indication: ENDOCARDIAL DISEASE
     Dosage: 1 ML IN 10 ML SALINE  X1  IV
     Route: 042
     Dates: start: 20050328, end: 20050328

REACTIONS (3)
  - DYSPNOEA [None]
  - HYPOTENSION [None]
  - RESPIRATORY DISTRESS [None]
